FAERS Safety Report 5736168-4 (Version None)
Quarter: 2008Q2

REPORT INFORMATION
  Report Type: 
  Country: None (occurrence: None)
  Receive Date: 20080509
  Receipt Date: 20080509
  Transmission Date: 20081010
  Serious: Yes (Hospitalization, Other)
  Sender: FDA-Public Use
  Company Number: None

PATIENT
  Age: 66 Year
  Sex: Male

DRUGS (1)
  1. GEMZAR [Suspect]
     Dosage: 1800 MG IV
     Route: 042
     Dates: start: 20071127, end: 20071127

REACTIONS (2)
  - DELIRIUM [None]
  - HALLUCINATION [None]
